FAERS Safety Report 4466315-6 (Version None)
Quarter: 2004Q4

REPORT INFORMATION
  Report Type: 
  Country: None (occurrence: None)
  Receive Date: 20041005
  Receipt Date: 20040927
  Transmission Date: 20050328
  Serious: Yes (Other)
  Sender: FDA-Public Use
  Company Number: IMRS 20425206

PATIENT
  Age: 49 Year
  Sex: Male

DRUGS (5)
  1. PAXIL [Suspect]
     Indication: DEPRESSION
     Dosage: 20MG PER DAY
     Route: 048
     Dates: start: 19940101
  2. DIAZEPAM [Concomitant]
     Indication: ANXIETY
     Dosage: 10MG PER DAY
     Route: 065
  3. ATENOLOL [Concomitant]
  4. ALTACE [Concomitant]
  5. HYDROCHLOROTHIAZIDE [Concomitant]

REACTIONS (4)
  - LOSS OF CONSCIOUSNESS [None]
  - PARAESTHESIA [None]
  - PHYSICAL ASSAULT [None]
  - SENSORY DISTURBANCE [None]
